FAERS Safety Report 21324434 (Version 1)
Quarter: 2022Q3

REPORT INFORMATION
  Report Type: Spontaneous
  Country: CA (occurrence: None)
  Receive Date: 20220911
  Receipt Date: 20220911
  Transmission Date: 20221026
  Serious: Yes (Life-Threatening, Hospitalization, Disabling)
  Sender: FDA-Public Use
  Company Number: None

PATIENT
  Age: 74 Year
  Sex: Female
  Weight: 65.25 kg

DRUGS (4)
  1. PEMBROLIZUMAB [Suspect]
     Active Substance: PEMBROLIZUMAB
     Indication: Triple negative breast cancer
     Dosage: OTHER FREQUENCY : EVERY THREE WEEKS;?
     Route: 058
     Dates: start: 20210424, end: 20210828
  2. HYDROCORTISONE [Concomitant]
     Active Substance: HYDROCORTISONE
  3. SYNTHROID [Concomitant]
     Active Substance: LEVOTHYROXINE SODIUM
  4. QUERCETIN [Concomitant]
     Active Substance: QUERCETIN

REACTIONS (2)
  - Incorrect dose administered [None]
  - Therapy interrupted [None]

NARRATIVE: CASE EVENT DATE: 20210910
